FAERS Safety Report 7129612-1 (Version None)
Quarter: 2010Q4

REPORT INFORMATION
  Report Type: 
  Country: None (occurrence: None)
  Receive Date: 20101130
  Receipt Date: 20101126
  Transmission Date: 20110411
  Serious: Yes (Death, Other)
  Sender: FDA-Public Use
  Company Number: PHHY2010EG80375

PATIENT
  Sex: Male
  Weight: 68 kg

DRUGS (4)
  1. EXJADE [Suspect]
     Indication: IRON OVERLOAD
  2. SILYMARIN [Concomitant]
     Dosage: 140 MG, TID
     Dates: start: 20091220
  3. NOURIC [Concomitant]
     Dosage: 300 MG, TID
     Dates: start: 20101109
  4. URSOCHOL [Concomitant]
     Dosage: 250 MG, TID
     Dates: start: 20101109

REACTIONS (5)
  - ASCITES [None]
  - DEATH [None]
  - HAEMOGLOBIN DECREASED [None]
  - JAUNDICE [None]
  - OEDEMA PERIPHERAL [None]
